FAERS Safety Report 7904033-X (Version None)
Quarter: 2011Q4

REPORT INFORMATION
  Report Type: 
  Country: None (occurrence: None)
  Receive Date: 20111109
  Receipt Date: 20111021
  Transmission Date: 20120403
  Serious: Yes (Other)
  Sender: FDA-Public Use
  Company Number: PHHY2011CA92536

PATIENT
  Sex: Female

DRUGS (3)
  1. INSULIN [Concomitant]
  2. CLOZARIL [Suspect]
     Indication: SCHIZOPHRENIA
     Dates: start: 20061219
  3. ANTIPSYCHOTICS [Concomitant]

REACTIONS (12)
  - AGRANULOCYTOSIS [None]
  - NEUTROPENIA [None]
  - ALANINE AMINOTRANSFERASE INCREASED [None]
  - MUSCULAR WEAKNESS [None]
  - TARDIVE DYSKINESIA [None]
  - NEUROLOGICAL SYMPTOM [None]
  - MALAISE [None]
  - BREAST CANCER [None]
  - BREAST PAIN [None]
  - MOTOR DYSFUNCTION [None]
  - HAEMATOCRIT DECREASED [None]
  - PLATELET COUNT INCREASED [None]
